FAERS Safety Report 8153956 (Version 2)
Quarter: 2014Q1

REPORT INFORMATION
  Report Type: Spontaneous
  Country: US (occurrence: US)
  Receive Date: 20110923
  Receipt Date: 20140128
  Transmission Date: 20141002
  Serious: No
  Sender: FDA-Public Use
  Company Number: US-JNJFOC-20110907101

PATIENT
  Age: 46 Year
  Sex: Male
  Weight: 99.79 kg

DRUGS (4)
  1. DURAGESIC [Suspect]
     Indication: ROTATOR CUFF SYNDROME
     Dosage: HERNIATED DISCS IN NECK, BACK AND L ROTARY CUFF
     Route: 062
     Dates: start: 201106
  2. DURAGESIC [Suspect]
     Indication: INTERVERTEBRAL DISC PROTRUSION
     Dosage: HERNIATED DISCS IN NECK, BACK AND L ROTARY CUFF
     Route: 062
     Dates: start: 201106
  3. PROTONIX [Concomitant]
     Indication: GASTROOESOPHAGEAL REFLUX DISEASE
     Route: 048
  4. ALLERGY MEDICATION [Concomitant]
     Indication: MULTIPLE ALLERGIES
     Dosage: UNSPECIFIED OVER THE COUNTER MEDICATION
     Route: 048

REACTIONS (5)
  - Wrong technique in drug usage process [Not Recovered/Not Resolved]
  - Product adhesion issue [Unknown]
  - Headache [Recovered/Resolved]
  - Vomiting [Recovered/Resolved]
  - Product quality issue [Unknown]
